FAERS Safety Report 20729717 (Version 3)
Quarter: 2022Q3

REPORT INFORMATION
  Report Type: Report from Study
  Country: JP (occurrence: JP)
  Receive Date: 20220420
  Receipt Date: 20220722
  Transmission Date: 20221027
  Serious: Yes (Hospitalization)
  Sender: FDA-Public Use
  Company Number: JP-CHUGAI-2022013316

PATIENT
  Age: 74 Year
  Sex: Female
  Weight: 58.3 kg

DRUGS (16)
  1. ATEZOLIZUMAB [Suspect]
     Active Substance: ATEZOLIZUMAB
     Indication: Breast cancer
     Dosage: 840 MILLIGRAM
     Route: 042
     Dates: start: 20210728, end: 20220323
  2. BEVACIZUMAB [Suspect]
     Active Substance: BEVACIZUMAB
     Indication: Breast cancer
     Dosage: 583 MILLIGRAM
     Route: 042
     Dates: start: 20210728, end: 20220323
  3. PACLITAXEL [Suspect]
     Active Substance: PACLITAXEL
     Indication: Breast cancer
     Dosage: 103 MILLIGRAM
     Route: 042
     Dates: start: 20210728, end: 20220323
  4. CRESTOR [Concomitant]
     Active Substance: ROSUVASTATIN CALCIUM
     Route: 048
  5. METILDIGOXIN [Concomitant]
     Active Substance: METILDIGOXIN
     Route: 048
  6. CIFENLINE [Concomitant]
     Active Substance: CIFENLINE
     Route: 048
  7. CARBOCYSTEINE [Concomitant]
     Active Substance: CARBOCYSTEINE
  8. PULMICORT TURBUHALER [Concomitant]
     Active Substance: BUDESONIDE
     Route: 048
  9. AZEPTIN [AZELASTINE HYDROCHLORIDE] [Concomitant]
     Route: 048
  10. ETIZOLAM [Concomitant]
     Active Substance: ETIZOLAM
  11. LOXOPROFEN SODIUM [Concomitant]
     Active Substance: LOXOPROFEN SODIUM
  12. KETOPROFEN [Concomitant]
     Active Substance: KETOPROFEN
     Route: 061
     Dates: start: 20210901
  13. AZILSARTAN KAMEDOXOMIL [Concomitant]
     Active Substance: AZILSARTAN KAMEDOXOMIL
     Route: 048
     Dates: start: 20210927
  14. REBAMIPIDE [Concomitant]
     Active Substance: REBAMIPIDE
  15. PREGABALIN [Concomitant]
     Active Substance: PREGABALIN
     Route: 048
     Dates: start: 20211201
  16. FAMOTIDINE [Concomitant]
     Active Substance: FAMOTIDINE
     Route: 048
     Dates: start: 20220127

REACTIONS (1)
  - Tubulointerstitial nephritis [Recovering/Resolving]

NARRATIVE: CASE EVENT DATE: 20220406
